FAERS Safety Report 4410582-1 (Version None)
Quarter: 2004Q3

REPORT INFORMATION
  Report Type: 
  Country: None (occurrence: None)
  Receive Date: 20040728
  Receipt Date: 20040728
  Transmission Date: 20050211
  Serious: Yes (Life-Threatening, Hospitalization)
  Sender: FDA-Public Use
  Company Number: None

PATIENT
  Age: 76 Year
  Sex: Male
  Weight: 114.4 kg

DRUGS (10)
  1. NEOSTIGMINE [Suspect]
     Indication: COLONIC PSEUDO-OBSTRUCTION
     Dosage: 2 MG IV    X1
     Route: 042
     Dates: start: 20040504
  2. PROBALANCE TF [Concomitant]
  3. INSULIN [Concomitant]
  4. HUMALOG [Concomitant]
  5. INSULIN DRIP [Concomitant]
  6. CITALOPRAM [Concomitant]
  7. MEGESTROL [Concomitant]
  8. REGLAN [Concomitant]
  9. METOPROLOL [Concomitant]
  10. PANTOPRAZOLE [Concomitant]

REACTIONS (5)
  - ASPIRATION [None]
  - BRADYCARDIA [None]
  - COMA [None]
  - CYANOSIS [None]
  - RESPIRATION ABNORMAL [None]
